FAERS Safety Report 5896316-2 (Version None)
Quarter: 2008Q3

REPORT INFORMATION
  Report Type: 
  Country: None (occurrence: None)
  Receive Date: 20080924
  Receipt Date: 20080612
  Transmission Date: 20090109
  Serious: Yes (Other)
  Sender: FDA-Public Use
  Company Number: US-ASTRAZENECA-2007UW19660

PATIENT
  Age: 48 Year
  Sex: Female
  Weight: 98 kg

DRUGS (1)
  1. SEROQUEL [Suspect]
     Indication: DEPRESSION
     Dosage: VARIOUS DOSES INCLUDING BUT NOT LIMITED TO 100 MG AND 300 MG
     Route: 048
     Dates: start: 20000101

REACTIONS (10)
  - ARTHRITIS [None]
  - ASTHMA [None]
  - BLOOD CHOLESTEROL INCREASED [None]
  - CARDIAC FAILURE CONGESTIVE [None]
  - CEREBROVASCULAR ACCIDENT [None]
  - DIABETES MELLITUS [None]
  - PANCREATITIS [None]
  - SUICIDE ATTEMPT [None]
  - VISUAL ACUITY REDUCED [None]
  - WEIGHT INCREASED [None]
